FAERS Safety Report 12384119 (Version 1)
Quarter: 2016Q2

REPORT INFORMATION
  Report Type: Other
  Country: ES (occurrence: ES)
  Receive Date: 20160519
  Receipt Date: 20160519
  Transmission Date: 20160815
  Serious: Yes (Other)
  Sender: FDA-Public Use
  Company Number: ES-LUPIN PHARMACEUTICALS INC.-2016-01982

PATIENT
  Age: 79 Year
  Sex: Male

DRUGS (2)
  1. TELMISARTAN AND HYDROCHLOROTHIAZIDE [Suspect]
     Active Substance: HYDROCHLOROTHIAZIDE\TELMISARTAN
     Indication: ESSENTIAL HYPERTENSION
     Dosage: 80MG/12.5MG
     Route: 065
  2. TRIPTORELIN [Concomitant]
     Active Substance: TRIPTORELIN
     Indication: PROSTATE CANCER
     Route: 065

REACTIONS (1)
  - Skin hyperpigmentation [Recovered/Resolved]
